APPROVED DRUG PRODUCT: MINOCYCLINE HYDROCHLORIDE
Active Ingredient: MINOCYCLINE HYDROCHLORIDE
Strength: EQ 65MG BASE
Dosage Form/Route: TABLET, EXTENDED RELEASE;ORAL
Application: A203553 | Product #003
Applicant: ZYDUS PHARMACEUTICALS USA INC
Approved: Jun 16, 2023 | RLD: No | RS: No | Type: DISCN